FAERS Safety Report 9604277 (Version 5)
Quarter: 2015Q3

REPORT INFORMATION
  Report Type: Spontaneous
  Country: US (occurrence: US)
  Receive Date: 20131008
  Receipt Date: 20150811
  Transmission Date: 20151125
  Serious: Yes (Life-Threatening, Other)
  Sender: FDA-Public Use
  Company Number: PHEH2012US014276

PATIENT
  Sex: Female
  Weight: 109.3 kg

DRUGS (11)
  1. SPIRONOLACTONE. [Concomitant]
     Active Substance: SPIRONOLACTONE
     Indication: PRODUCT USED FOR UNKNOWN INDICATION
     Dosage: 25 MG, QD
     Route: 065
  2. VALTURNA [Suspect]
     Active Substance: ALISKIREN HEMIFUMARATE\VALSARTAN
     Indication: HYPERTENSION
     Dosage: 300 MG, QD
     Route: 065
     Dates: start: 20101011, end: 20120719
  3. VICTOZA [Concomitant]
     Active Substance: LIRAGLUTIDE
     Indication: PRODUCT USED FOR UNKNOWN INDICATION
     Dosage: 1.8 MG, SHOT QD
     Route: 065
  4. BYSTOLIC [Concomitant]
     Active Substance: NEBIVOLOL HYDROCHLORIDE
     Indication: PRODUCT USED FOR UNKNOWN INDICATION
     Dosage: 20 MG, BID
     Route: 065
  5. GLIPIZIDE. [Concomitant]
     Active Substance: GLIPIZIDE
     Indication: PRODUCT USED FOR UNKNOWN INDICATION
     Dosage: 10 MG, QD
     Route: 065
  6. ASPIRIN. [Concomitant]
     Active Substance: ASPIRIN
  7. LANTUS [Concomitant]
     Active Substance: INSULIN GLARGINE
     Dosage: 20 U, QD
     Route: 058
     Dates: start: 20120312
  8. ERGOCALCIFEROL. [Concomitant]
     Active Substance: ERGOCALCIFEROL
     Dosage: 50000 U, QW
     Route: 048
     Dates: start: 20120220
  9. CRESTOR [Concomitant]
     Active Substance: ROSUVASTATIN CALCIUM
     Indication: PRODUCT USED FOR UNKNOWN INDICATION
     Dosage: 5 MG, QD
     Route: 065
  10. HYDROCHLOROTHIAZIDE. [Concomitant]
     Active Substance: HYDROCHLOROTHIAZIDE
     Indication: PRODUCT USED FOR UNKNOWN INDICATION
     Dosage: 25 MG, QD
     Route: 065
  11. AMLODIN [Concomitant]
     Active Substance: AMLODIPINE BESYLATE
     Indication: PRODUCT USED FOR UNKNOWN INDICATION
     Dosage: 10 MG, QD
     Route: 065

REACTIONS (34)
  - Renal failure [Unknown]
  - Anhedonia [Unknown]
  - Aortic dilatation [Unknown]
  - Hypotension [Unknown]
  - Anxiety [Unknown]
  - Cataract [Unknown]
  - Hyperlipidaemia [Unknown]
  - Mitral valve incompetence [Unknown]
  - Cataract nuclear [Unknown]
  - Haemorrhoids [Unknown]
  - Bundle branch block right [Unknown]
  - Diabetic retinal oedema [Unknown]
  - Hyperkalaemia [Unknown]
  - Renal impairment [Unknown]
  - Osteopenia [Unknown]
  - Pollakiuria [Unknown]
  - Visual acuity reduced [Unknown]
  - Chronic kidney disease [Unknown]
  - Aortic arteriosclerosis [Unknown]
  - Spinal osteoarthritis [Unknown]
  - Apparent death [Unknown]
  - Cerebrovascular accident [Unknown]
  - Bladder disorder [Unknown]
  - Dilatation atrial [Unknown]
  - Hypocalcaemia [Unknown]
  - Pain [Unknown]
  - Cardiovascular disorder [Unknown]
  - Actinic keratosis [Unknown]
  - Left ventricular hypertrophy [Unknown]
  - Hyperparathyroidism secondary [Unknown]
  - Vitamin D deficiency [Unknown]
  - Diabetic retinopathy [Unknown]
  - Injury [Unknown]
  - Arteriosclerosis coronary artery [Unknown]

NARRATIVE: CASE EVENT DATE: 2012
